FAERS Safety Report 13003632 (Version 1)
Quarter: 2016Q4

REPORT INFORMATION
  Report Type: Spontaneous
  Country: US (occurrence: US)
  Receive Date: 20161206
  Receipt Date: 20161206
  Transmission Date: 20170207
  Serious: Yes (Hospitalization, Other)
  Sender: FDA-Public Use
  Company Number: US-ABBVIE-16P-163-1753521-00

PATIENT
  Age: 70 Year
  Sex: Male
  Weight: 72.1 kg

DRUGS (4)
  1. VENCLEXTA [Suspect]
     Active Substance: VENETOCLAX
     Route: 048
     Dates: start: 20160928, end: 20161006
  2. VENCLEXTA [Suspect]
     Active Substance: VENETOCLAX
     Route: 048
     Dates: start: 20161007, end: 20161123
  3. VENCLEXTA [Suspect]
     Active Substance: VENETOCLAX
     Indication: LEUKAEMIA
     Route: 048
     Dates: start: 20160914, end: 20160920
  4. VENCLEXTA [Suspect]
     Active Substance: VENETOCLAX
     Route: 048
     Dates: start: 20160920, end: 20160927

REACTIONS (8)
  - General physical health deterioration [Unknown]
  - Osteomyelitis [Unknown]
  - White blood cell count increased [Unknown]
  - Pyrexia [Unknown]
  - Perirectal abscess [Unknown]
  - Cytomegalovirus infection [Unknown]
  - Bronchopulmonary aspergillosis [Unknown]
  - Candida infection [Unknown]

NARRATIVE: CASE EVENT DATE: 20160930
